FAERS Safety Report 10297723 (Version 4)
Quarter: 2014Q3

REPORT INFORMATION
  Report Type: Report from Study
  Country: KR (occurrence: KR)
  Receive Date: 20140711
  Receipt Date: 20140820
  Transmission Date: 20150326
  Serious: Yes (Hospitalization)
  Sender: FDA-Public Use
  Company Number: KR-B.I. PHARMACEUTICALS,INC./RIDGEFIELD-2014-BI-31344II

PATIENT
  Age: 71 Year
  Sex: Male
  Weight: 42.7 kg

DRUGS (1)
  1. BIBW 2992 [Suspect]
     Active Substance: AFATINIB
     Indication: NON-SMALL CELL LUNG CANCER
     Dosage: 40 MG
     Route: 048
     Dates: start: 20140618, end: 20140702

REACTIONS (1)
  - Vocal cord paralysis [Recovered/Resolved]

NARRATIVE: CASE EVENT DATE: 20140701
